FAERS Safety Report 12384952 (Version 3)
Quarter: 2019Q1

REPORT INFORMATION
  Report Type: Spontaneous
  Country: JP (occurrence: JP)
  Receive Date: 20160519
  Receipt Date: 20190318
  Transmission Date: 20190417
  Serious: Yes (Death, Hospitalization)
  Sender: FDA-Public Use
  Company Number: JP-ACTELION-A-CH2016-136211

PATIENT
  Age: 65 Year
  Sex: Female

DRUGS (7)
  1. TRACLEER [Concomitant]
     Active Substance: BOSENTAN
  2. WARFARIN [Concomitant]
     Active Substance: WARFARIN
  3. PREDONINE [Concomitant]
     Active Substance: PREDNISOLONE
  4. BAYASPIRIN [Concomitant]
     Active Substance: ASPIRIN
  5. OPSUMIT [Suspect]
     Active Substance: MACITENTAN
     Indication: PULMONARY ARTERIAL HYPERTENSION
     Dosage: 10 MG, OD
     Route: 048
     Dates: start: 20151226, end: 20160327
  6. REVATIO [Concomitant]
     Active Substance: SILDENAFIL CITRATE
  7. OXYGEN. [Concomitant]
     Active Substance: OXYGEN

REACTIONS (14)
  - Urine output decreased [Fatal]
  - Respiratory disorder [Fatal]
  - Cardio-respiratory arrest [Fatal]
  - Generalised oedema [Fatal]
  - Concomitant disease aggravated [Fatal]
  - Oedema peripheral [Not Recovered/Not Resolved]
  - Dyspnoea [Fatal]
  - Right ventricular failure [Fatal]
  - Chest pain [Fatal]
  - Pleural effusion [Fatal]
  - Back pain [Fatal]
  - Abdominal distension [Fatal]
  - Anuria [Fatal]
  - Gastrointestinal necrosis [Fatal]

NARRATIVE: CASE EVENT DATE: 20160327
